FAERS Safety Report 15012604 (Version 1)
Quarter: 2018Q2

REPORT INFORMATION
  Report Type: Spontaneous
  Country: FR (occurrence: FR)
  Receive Date: 20180614
  Receipt Date: 20180614
  Transmission Date: 20180711
  Serious: Yes (Hospitalization)
  Sender: FDA-Public Use
  Company Number: FR-TEVA-2018-FR-906669

PATIENT
  Age: 26 Year
  Sex: Female
  Weight: 143.5 kg

DRUGS (6)
  1. ARIPIPRAZOLE. [Suspect]
     Active Substance: ARIPIPRAZOLE
     Indication: ABNORMAL BEHAVIOUR
     Dosage: 20 MILLIGRAM DAILY;
     Route: 048
     Dates: start: 20171212, end: 20180302
  2. CLOZAPINE. [Concomitant]
     Active Substance: CLOZAPINE
     Dosage: 400 MILLIGRAM DAILY;
     Route: 048
     Dates: start: 2014
  3. LAMICTAL [Concomitant]
     Active Substance: LAMOTRIGINE
     Dosage: 200 MILLIGRAM DAILY;
     Route: 048
     Dates: start: 2014
  4. LOXAPINE (SUCCINATE DE) [Concomitant]
     Active Substance: LOXAPINE SUCCINATE
     Route: 048
     Dates: start: 2014
  5. TEMESTA 2,5 MG, COMPRIM? S?CABLE [Concomitant]
     Dosage: 2.5 MILLIGRAM DAILY;
     Route: 048
     Dates: start: 2014
  6. VALPROATE DE SODIUM [Concomitant]
     Active Substance: VALPROATE SODIUM
     Dosage: 1000 MILLIGRAM DAILY;
     Route: 048
     Dates: start: 2014

REACTIONS (3)
  - Hallucination, auditory [Recovering/Resolving]
  - Epilepsy [Recovering/Resolving]
  - Anxiety [Recovering/Resolving]

NARRATIVE: CASE EVENT DATE: 201801
